FAERS Safety Report 4371885-2 (Version None)
Quarter: 2004Q2

REPORT INFORMATION
  Report Type: 
  Country: None (occurrence: None)
  Receive Date: 20040602
  Receipt Date: 20040518
  Transmission Date: 20050107
  Serious: Yes (Other)
  Sender: FDA-Public Use
  Company Number: B0333252A

PATIENT
  Age: 34 Year
  Sex: Male

DRUGS (4)
  1. EPIVIR [Suspect]
     Indication: HIV INFECTION
     Dosage: ORAL
     Route: 048
  2. INDINAVIR SULFATE (FORMULATION UNKNOWN) (INDINAVIR SULFATE) [Suspect]
     Indication: HIV INFECTION
     Dosage: ORAL
     Route: 048
  3. STAVUDINE (FORMULATION UNKNOWN) (STAVUDINE) [Suspect]
     Indication: HIV INFECTION
     Dosage: ORAL
     Route: 048
  4. CORTICOSTEROID [Concomitant]

REACTIONS (2)
  - ASEPTIC NECROSIS BONE [None]
  - PAIN [None]
